FAERS Safety Report 6864288-X (Version None)
Quarter: 2010Q3

REPORT INFORMATION
  Report Type: 
  Country: None (occurrence: None)
  Receive Date: 20100721
  Receipt Date: 20090506
  Transmission Date: 20110219
  Serious: No
  Sender: FDA-Public Use
  Company Number: US-PFIZER INC-2008023446

PATIENT
  Sex: Female
  Weight: 90.4 kg

DRUGS (14)
  1. CHANTIX [Suspect]
     Indication: SMOKING CESSATION THERAPY
     Dates: start: 20071224
  2. NEURONTIN [Concomitant]
  3. PRILOSEC [Concomitant]
  4. ZESTRIL [Concomitant]
  5. CAPTOPRIL [Concomitant]
  6. BETAPACE [Concomitant]
  7. LASIX [Concomitant]
  8. PAXIL [Concomitant]
  9. RESTORIL [Concomitant]
  10. ALLEGRA [Concomitant]
  11. CATAPRES [Concomitant]
  12. CARDIZEM [Concomitant]
  13. PLAVIX [Concomitant]
  14. ZOCOR [Concomitant]

REACTIONS (3)
  - ABNORMAL DREAMS [None]
  - BLOOD CHOLESTEROL INCREASED [None]
  - DRUG INEFFECTIVE [None]
